FAERS Safety Report 14200350 (Version 1)
Quarter: 2017Q4

REPORT INFORMATION
  Report Type: Spontaneous
  Country: US (occurrence: US)
  Receive Date: 20171117
  Receipt Date: 20171117
  Transmission Date: 20180321
  Serious: Yes (Other)
  Sender: FDA-Public Use
  Company Number: US-NOVOPROD-517416

PATIENT
  Age: 52 Year
  Sex: Female
  Weight: 77.98 kg

DRUGS (4)
  1. NOVOLOG [Suspect]
     Active Substance: INSULIN ASPART
     Dosage: .85 UNITS @ 11:00PM AND .95 UNITS @ 3:00 AM, AND CHANGED AT 8:00AM (DOSAGE NOT REPORTED FOR 8:00 AM)
     Route: 058
     Dates: start: 2004
  2. AMITRIPTYLINE [Concomitant]
     Active Substance: AMITRIPTYLINE
     Indication: PRODUCT USED FOR UNKNOWN INDICATION
     Dosage: UNK
  3. NOVOLOG [Suspect]
     Active Substance: INSULIN ASPART
     Indication: TYPE 1 DIABETES MELLITUS
     Dosage: .85 UNITS @ 11:00PM AND .95 UNITS @ 3:00 AM, AND CHANGED AT 8:00AM (DOSAGE NOT REPORTED FOR 8:00 AM)
     Route: 058
     Dates: start: 2004
  4. OXYCODONE [Concomitant]
     Active Substance: OXYCODONE
     Indication: PRODUCT USED FOR UNKNOWN INDICATION
     Dosage: UNKNOWN

REACTIONS (5)
  - Hypersensitivity [Not Recovered/Not Resolved]
  - Blood glucose decreased [Recovered/Resolved]
  - Blood glucose increased [Unknown]
  - Nervous system disorder [Not Recovered/Not Resolved]
  - Dry mouth [Unknown]

NARRATIVE: CASE EVENT DATE: 201610
